FAERS Safety Report 8153564-9 (Version None)
Quarter: 2012Q1

REPORT INFORMATION
  Report Type: 
  Country: None (occurrence: None)
  Receive Date: 20120221
  Receipt Date: 20120213
  Transmission Date: 20120608
  Serious: Yes (Hospitalization)
  Sender: FDA-Public Use
  Company Number: DE-B.I. PHARMACEUTICALS,INC./RIDGEFIELD-2011-DE-06416DE

PATIENT
  Sex: Female
  Weight: 70 kg

DRUGS (12)
  1. VOCADO [Concomitant]
     Dosage: 1 ANZ
  2. PANTOPRAZOLE [Concomitant]
     Dosage: 1 ANZ
  3. L-THYROX [Concomitant]
     Dosage: 1 ANZ
  4. PRADAXA [Suspect]
     Indication: ATRIAL FIBRILLATION
     Dosage: 220 MG
     Dates: end: 20120206
  5. PRADAXA [Suspect]
     Indication: CARDIAC VALVE DISEASE
  6. TORSEMIDE [Concomitant]
     Dosage: 2 ANZ
  7. SIMVASTATIN [Concomitant]
     Dosage: 1 ANZ
  8. PRADAXA [Suspect]
     Indication: CORONARY ARTERY DISEASE
  9. TORSEMIDE [Concomitant]
     Dosage: 20 MG
  10. SPIRONOLACTONE [Concomitant]
     Dosage: 25 MG
  11. INSULIN [Concomitant]
  12. CARVEDILOL [Concomitant]
     Dosage: 1 ANZ

REACTIONS (2)
  - EPISTAXIS [None]
  - HYPERTENSIVE CRISIS [None]
